FAERS Safety Report 20216643 (Version 1)
Quarter: 2021Q4

REPORT INFORMATION
  Report Type: Spontaneous
  Country: US (occurrence: None)
  Receive Date: 20211221
  Receipt Date: 20211221
  Transmission Date: 20220303
  Serious: Yes (Hospitalization)
  Sender: FDA-Public Use
  Company Number: None

PATIENT
  Age: 61 Year
  Sex: Male
  Weight: 103 kg

DRUGS (1)
  1. APIXABAN [Suspect]
     Active Substance: APIXABAN
     Indication: Atrial fibrillation
     Dosage: FREQUENCY : TWICE A DAY;?
     Route: 048
     Dates: start: 20210927, end: 20210930

REACTIONS (7)
  - Cerebrovascular accident [None]
  - Subdural haemorrhage [None]
  - Cerebral mass effect [None]
  - Deep vein thrombosis [None]
  - Haemorrhage [None]
  - Renal transplant [None]
  - Blood creatinine increased [None]

NARRATIVE: CASE EVENT DATE: 20210930
